FAERS Safety Report 8965737 (Version 2)
Quarter: 2013Q1

REPORT INFORMATION
  Report Type: Spontaneous
  Country: BE (occurrence: None)
  Receive Date: 20121204
  Receipt Date: 20121212
  Transmission Date: 20140127
  Serious: Yes (Hospitalization)
  Sender: FDA-Public Use
  Company Number: ACO_33090_2012

PATIENT
  Age: 58 Year
  Sex: Female

DRUGS (8)
  1. FAMPRIDINE-SR (FAMPRIDINE) TABLET [Suspect]
     Indication: MULTIPLE SCLEROSIS
     Route: 048
     Dates: start: 200909
  2. TRIBVIT (CYANOCOBALAMIN, FOLIC ACID, PYRIDOXINE HYDROCHLORIDE) [Concomitant]
  3. ELTHYRONE (LEVOTHYROXINE SODIUM) [Concomitant]
  4. VENLAFAXINE (VENLAFAXINE HYDROCHLORIDE) [Concomitant]
  5. PANTOMED (PANTOPRAZOLE SODIUM SESQUIHYDRATE) [Concomitant]
  6. METFORMAX (METFORMIN HYDROCHLORIDE) [Concomitant]
  7. ASAFLOW (ACETYLSALICYLIC ACID) [Concomitant]
  8. BETAFERON (INTERFERON BETA-1B) [Concomitant]

REACTIONS (1)
  - Bunion operation [None]
